FAERS Safety Report 17218104 (Version 1)
Quarter: 2019Q4

REPORT INFORMATION
  Report Type: Spontaneous
  Country: US (occurrence: US)
  Receive Date: 20191228
  Receipt Date: 20191228
  Transmission Date: 20200122
  Serious: Yes (Disabling, Other)
  Sender: FDA-Public Use
  Company Number: None

PATIENT
  Age: 37 Year
  Sex: Male
  Weight: 94.5 kg

DRUGS (6)
  1. PAIN OUT MAENG DA [Suspect]
     Active Substance: HERBALS\MITRAGYNINE
     Indication: PAIN
     Route: 048
  2. PAIN OUT MAENG DA [Suspect]
     Active Substance: HERBALS\MITRAGYNINE
     Indication: DEPRESSION
     Route: 048
  3. WHOLE HERBS PREMIUM MAENG DA KRATOM [Suspect]
     Active Substance: HERBALS\MITRAGYNINE
     Indication: DEPRESSION
     Route: 048
  4. VITAMINS [Concomitant]
     Active Substance: VITAMINS
  5. WHOLE HERBS PREMIUM MAENG DA KRATOM [Suspect]
     Active Substance: HERBALS\MITRAGYNINE
     Indication: PAIN
     Route: 048
  6. MINERALS [Concomitant]
     Active Substance: MINERALS

REACTIONS (7)
  - Arthralgia [None]
  - Myalgia [None]
  - Pain [None]
  - Systemic lupus erythematosus [None]
  - Inflammation [None]
  - Antinuclear antibody positive [None]
  - Joint injury [None]
